FAERS Safety Report 14571145 (Version 1)
Quarter: 2018Q1

REPORT INFORMATION
  Report Type: Spontaneous
  Country: JP (occurrence: JP)
  Receive Date: 20180226
  Receipt Date: 20180226
  Transmission Date: 20180509
  Serious: Yes (Other)
  Sender: FDA-Public Use
  Company Number: GXJP2018JP000659

PATIENT
  Age: 64 Year
  Sex: Female

DRUGS (4)
  1. ETOPOSIDE INTRAVENOUS INFUSION [Suspect]
     Active Substance: ETOPOSIDE
     Indication: STEM CELL TRANSPLANT
     Dosage: UNK
     Route: 041
     Dates: start: 20161027, end: 20161102
  2. ENDOXAN [Suspect]
     Active Substance: CYCLOPHOSPHAMIDE
     Indication: STEM CELL TRANSPLANT
     Dosage: UNK
     Route: 065
     Dates: start: 20161027, end: 20161102
  3. CARBOPLATIN INTRAVENOUS INFUSION [Suspect]
     Active Substance: CARBOPLATIN
     Indication: STEM CELL TRANSPLANT
     Dosage: UNK
     Route: 041
     Dates: start: 20161027, end: 20161102
  4. CYMERIN [Suspect]
     Active Substance: RANIMUSTINE
     Indication: STEM CELL TRANSPLANT
     Dosage: UNK
     Route: 065
     Dates: start: 20161027, end: 20161102

REACTIONS (5)
  - Blood pressure decreased [Recovering/Resolving]
  - Renal impairment [Recovering/Resolving]
  - Cardiac tamponade [Recovering/Resolving]
  - Hepatic enzyme increased [Recovering/Resolving]
  - Anuria [Recovering/Resolving]

NARRATIVE: CASE EVENT DATE: 20161105
